FAERS Safety Report 16327017 (Version 3)
Quarter: 2019Q2

REPORT INFORMATION
  Report Type: Spontaneous
  Country: JP (occurrence: JP)
  Receive Date: 20190517
  Receipt Date: 20190531
  Transmission Date: 20190711
  Serious: Yes (Other)
  Sender: FDA-Public Use
  Company Number: JP-ASTRAZENECA-2019SE34778

PATIENT
  Age: 27932 Day
  Sex: Female
  Weight: 49 kg

DRUGS (12)
  1. TANKARU [Concomitant]
     Indication: HYPOCALCAEMIA
     Route: 048
     Dates: start: 20161101
  2. FEXOFENADINE HYDROCHLORIDE. [Concomitant]
     Active Substance: FEXOFENADINE HYDROCHLORIDE
     Route: 048
     Dates: start: 20161125, end: 20190304
  3. BETANIS [Concomitant]
     Active Substance: MIRABEGRON
     Indication: HYPERTONIC BLADDER
     Route: 048
     Dates: start: 20180222
  4. RANMARK [Concomitant]
     Active Substance: DENOSUMAB
     Indication: BONE LESION
     Dosage: 120.0MG UNKNOWN
     Route: 058
     Dates: start: 20161101
  5. IRESSA [Suspect]
     Active Substance: GEFITINIB
     Indication: LUNG ADENOCARCINOMA
     Route: 048
     Dates: start: 20161004, end: 20161125
  6. MAGMITT [Concomitant]
     Active Substance: MAGNESIUM OXIDE
     Indication: CONSTIPATION
     Route: 048
     Dates: start: 20170718
  7. HIRUDOID [Concomitant]
     Active Substance: GLYCOSAMINOGLYCANS
     Indication: DRY SKIN
     Dosage: 5 G ONCE OR TWICE DAILY
     Route: 062
     Dates: start: 20161003
  8. TAGRISSO [Suspect]
     Active Substance: OSIMERTINIB
     Indication: NON-SMALL CELL LUNG CANCER
     Route: 048
     Dates: start: 20181205, end: 20190124
  9. NEXIUM [Concomitant]
     Active Substance: ESOMEPRAZOLE MAGNESIUM
     Indication: GASTROOESOPHAGEAL REFLUX DISEASE
     Route: 048
     Dates: start: 20170718
  10. TARCEVA [Suspect]
     Active Substance: ERLOTINIB HYDROCHLORIDE
     Indication: NON-SMALL CELL LUNG CANCER
     Route: 048
     Dates: start: 20170105, end: 20181129
  11. CALFINA [Concomitant]
     Active Substance: ALFACALCIDOL
     Indication: HYPOCALCAEMIA
     Route: 048
     Dates: start: 20161101
  12. OXYCODONE [Concomitant]
     Active Substance: OXYCODONE
     Indication: PAIN
     Route: 048
     Dates: start: 20170718

REACTIONS (7)
  - Metastases to lung [Unknown]
  - Metastases to bone [Unknown]
  - Interstitial lung disease [Recovering/Resolving]
  - Pruritus [Not Recovered/Not Resolved]
  - Malignant neoplasm progression [Unknown]
  - Metastases to central nervous system [Unknown]
  - Dry skin [Not Recovered/Not Resolved]

NARRATIVE: CASE EVENT DATE: 20161016
